FAERS Safety Report 20153269 (Version 1)
Quarter: 2021Q4

REPORT INFORMATION
  Report Type: Spontaneous
  Country: US (occurrence: US)
  Receive Date: 20211206
  Receipt Date: 20211206
  Transmission Date: 20220303
  Serious: No
  Sender: FDA-Public Use
  Company Number: US-BoehringerIngelheim-2021-BI-142104

PATIENT
  Age: 64 Year
  Sex: Female

DRUGS (1)
  1. OFEV [Suspect]
     Active Substance: NINTEDANIB
     Indication: Interstitial lung disease
     Dosage: 100MG PO BID
     Dates: start: 20211124, end: 20211204

REACTIONS (3)
  - Oral pain [Recovering/Resolving]
  - Glossodynia [Recovering/Resolving]
  - Rash [Recovering/Resolving]

NARRATIVE: CASE EVENT DATE: 20211203
